FAERS Safety Report 10310715 (Version 1)
Quarter: 2014Q3

REPORT INFORMATION
  Report Type: Spontaneous
  Country: US (occurrence: None)
  Receive Date: 20140716
  Receipt Date: 20140716
  Transmission Date: 20150326
  Serious: No
  Sender: FDA-Public Use
  Company Number: None

PATIENT
  Age: 32 Year
  Sex: Male
  Weight: 100.25 kg

DRUGS (1)
  1. TEGRETOL [Suspect]
     Active Substance: CARBAMAZEPINE
     Indication: BIPOLAR DISORDER
     Route: 048
     Dates: start: 20140530, end: 20140714

REACTIONS (5)
  - Abdominal distension [None]
  - Abdominal pain [None]
  - Weight increased [None]
  - Somnolence [None]
  - Insomnia [None]

NARRATIVE: CASE EVENT DATE: 20140714
